FAERS Safety Report 10516573 (Version 2)
Quarter: 2014Q4

REPORT INFORMATION
  Report Type: Spontaneous
  Country: JP (occurrence: JP)
  Receive Date: 20141014
  Receipt Date: 20141014
  Transmission Date: 20150528
  Serious: Yes (Hospitalization, Disabling, Other)
  Sender: FDA-Public Use
  Company Number: JP-GLAXOSMITHKLINE-B0998005A

PATIENT
  Age: 37 Year
  Sex: Male

DRUGS (20)
  1. FOSAMPRENAVIR [Suspect]
     Active Substance: FOSAMPRENAVIR
     Indication: ACQUIRED IMMUNODEFICIENCY SYNDROME
     Route: 048
  2. DUROTEP [Suspect]
     Active Substance: FENTANYL
     Dosage: 2.1 MG, U
     Route: 050
     Dates: start: 20140207, end: 20140408
  3. DORAL [Concomitant]
     Active Substance: QUAZEPAM
     Route: 048
  4. LIMAS [Concomitant]
     Active Substance: LITHIUM CARBONATE
     Route: 048
  5. TIVICAY [Suspect]
     Active Substance: DOLUTEGRAVIR SODIUM
     Route: 048
     Dates: start: 20140424
  6. DEPAKENE [Suspect]
     Active Substance: VALPROIC ACID
     Route: 048
  7. FENTOS [Suspect]
     Active Substance: FENTANYL
     Dosage: 1 MG, U
     Route: 050
     Dates: start: 20140911
  8. TRUVADA [Concomitant]
     Active Substance: EMTRICITABINE\TENOFOVIR DISOPROXIL FUMARATE
     Indication: ACQUIRED IMMUNODEFICIENCY SYNDROME
     Route: 048
  9. ISENTRESS [Concomitant]
     Active Substance: RALTEGRAVIR POTASSIUM
     Route: 048
     Dates: end: 201404
  10. TRAZODONE [Concomitant]
     Active Substance: TRAZODONE HYDROCHLORIDE
     Route: 048
  11. TRAMAL [Suspect]
     Active Substance: TRAMADOL
     Indication: ARTHRALGIA
     Route: 048
  12. DUROTEP [Suspect]
     Active Substance: FENTANYL
     Dosage: 2.1 MG, UNK
     Route: 050
     Dates: start: 20140731
  13. SEROQUEL [Concomitant]
     Active Substance: QUETIAPINE FUMARATE
     Route: 048
  14. TOPINA [Concomitant]
     Active Substance: TOPIRAMATE
     Route: 048
  15. RISPERDAL [Suspect]
     Active Substance: RISPERIDONE
     Route: 048
  16. PREDNISOLONE. [Suspect]
     Active Substance: PREDNISOLONE
     Indication: RASH
     Dosage: 5 MG, BID
     Route: 048
     Dates: start: 2007, end: 2008
  17. TRAMCET [Concomitant]
     Active Substance: ACETAMINOPHEN\TRAMADOL
     Indication: ARTHRALGIA
     Route: 048
  18. GABAPEN [Concomitant]
     Active Substance: GABAPENTIN
     Indication: ARTHRALGIA
  19. GABALON [Suspect]
     Active Substance: BACLOFEN
     Route: 048
  20. DUROTEP [Suspect]
     Active Substance: FENTANYL
     Dosage: 4.2 MG, U
     Route: 050
     Dates: start: 20140409, end: 20140730

REACTIONS (5)
  - Arthralgia [Unknown]
  - Dizziness [Unknown]
  - Osteonecrosis [Recovered/Resolved with Sequelae]
  - Somnolence [Recovering/Resolving]
  - Dizziness [None]

NARRATIVE: CASE EVENT DATE: 2012
